FAERS Safety Report 9693707 (Version 2)
Quarter: 2014Q2

REPORT INFORMATION
  Report Type: Spontaneous
  Country: AU (occurrence: AU)
  Receive Date: 20131118
  Receipt Date: 20140603
  Transmission Date: 20141212
  Serious: Yes (Other)
  Sender: FDA-Public Use
  Company Number: AU-ABBVIE-13P-008-1157746-00

PATIENT
  Age: 73 Year
  Sex: Male

DRUGS (1)
  1. EPILIM [Suspect]
     Indication: PAIN
     Dosage: DAILY
     Route: 048
     Dates: start: 20060622, end: 20060723

REACTIONS (2)
  - Respiratory depression [Recovered/Resolved]
  - Dyspnoea [Recovered/Resolved]
